FAERS Safety Report 19648362 (Version 1)
Quarter: 2021Q3

REPORT INFORMATION
  Report Type: Spontaneous
  Country: MY (occurrence: MY)
  Receive Date: 20210802
  Receipt Date: 20210802
  Transmission Date: 20211014
  Serious: Yes (Hospitalization, Other)
  Sender: FDA-Public Use
  Company Number: MY-ROCHE-2861641

PATIENT
  Age: 51 Year
  Sex: Male

DRUGS (6)
  1. METALYSE [Suspect]
     Active Substance: TENECTEPLASE
     Indication: EMBOLISM
     Route: 042
     Dates: start: 20201122, end: 20201122
  2. CERUVIN [Concomitant]
     Active Substance: CLOPIDOGREL BISULFATE
     Indication: EMBOLISM
     Dosage: OD (ONCE DAILY)
     Route: 048
     Dates: start: 20201122, end: 20201129
  3. METALYSE [Suspect]
     Active Substance: TENECTEPLASE
     Indication: ACUTE MYOCARDIAL INFARCTION
  4. HEPARINOL [HEPARIN SODIUM] [Suspect]
     Active Substance: HEPARIN SODIUM
     Dosage: STAT
     Route: 058
     Dates: start: 20201122, end: 20201122
  5. HEPARINOL [HEPARIN SODIUM] [Suspect]
     Active Substance: HEPARIN SODIUM
     Indication: ACUTE MYOCARDIAL INFARCTION
     Dosage: CONTINUOUS INFUSION
     Route: 058
     Dates: start: 20201122, end: 20201123
  6. ACETYLSALICYLIC ACID [Concomitant]
     Active Substance: ASPIRIN

REACTIONS (2)
  - Acute myocardial infarction [Unknown]
  - Urticaria [Recovering/Resolving]

NARRATIVE: CASE EVENT DATE: 20201122
